FAERS Safety Report 8163235-0 (Version None)
Quarter: 2012Q1

REPORT INFORMATION
  Report Type: 
  Country: None (occurrence: None)
  Receive Date: 20120224
  Receipt Date: 20110922
  Transmission Date: 20120608
  Serious: No
  Sender: FDA-Public Use
  Company Number: US-PFIZER INC-K201101118

PATIENT
  Sex: Female
  Weight: 76.644 kg

DRUGS (2)
  1. FLECTOR [Suspect]
     Indication: BACK PAIN
     Dosage: UNK PATCH, QD
     Route: 061
     Dates: start: 20110908, end: 20110915
  2. FLECTOR [Suspect]
     Indication: SCIATICA

REACTIONS (4)
  - HEADACHE [None]
  - PAIN [None]
  - DIARRHOEA [None]
  - URTICARIA [None]
